FAERS Safety Report 18122152 (Version 1)
Quarter: 2020Q3

REPORT INFORMATION
  Report Type: Spontaneous
  Country: US (occurrence: US)
  Receive Date: 20200807
  Receipt Date: 20200807
  Transmission Date: 20201103
  Serious: Yes (Hospitalization)
  Sender: FDA-Public Use
  Company Number: US-ROCHE-2654459

PATIENT
  Age: 55 Year
  Sex: Female

DRUGS (2)
  1. XELODA [Suspect]
     Active Substance: CAPECITABINE
     Indication: PRODUCT USED FOR UNKNOWN INDICATION
     Dosage: THERAPY STATUS: TOOK OFF THE MEDICATION FOR A WHILE, GOING TO RESTART THEM ON XELODA WITH RADIATION
     Route: 048
     Dates: start: 2020
  2. PANTOPRAZOLE [Concomitant]
     Active Substance: PANTOPRAZOLE

REACTIONS (2)
  - Drug interaction [Unknown]
  - Diplopia [Unknown]

NARRATIVE: CASE EVENT DATE: 20200730
